FAERS Safety Report 9866917 (Version 2)
Quarter: 2014Q1

REPORT INFORMATION
  Report Type: Spontaneous
  Country: US (occurrence: US)
  Receive Date: 20140204
  Receipt Date: 20140319
  Transmission Date: 20141002
  Serious: No
  Sender: FDA-Public Use
  Company Number: US-PFIZER INC-2014031081

PATIENT
  Age: 11 Year
  Sex: Female
  Weight: 25.3 kg

DRUGS (2)
  1. GENOTROPIN [Suspect]
     Dosage: 5 MG, UNK
     Dates: start: 2012
  2. CONCERTA [Concomitant]
     Dosage: UNK

REACTIONS (2)
  - Injection site bruising [Unknown]
  - Injection site pain [Unknown]
